FAERS Safety Report 9128731 (Version 1)
Quarter: 2013Q1

REPORT INFORMATION
  Report Type: Spontaneous
  Country: US (occurrence: US)
  Receive Date: 20130125
  Receipt Date: 20130125
  Transmission Date: 20140127
  Serious: Yes (Other)
  Sender: FDA-Public Use
  Company Number: PHEH2013US002226

PATIENT
  Sex: Male

DRUGS (1)
  1. GILENYA [Suspect]

REACTIONS (2)
  - Trigeminal neuralgia [Unknown]
  - Depression [Unknown]
